FAERS Safety Report 6447926-5 (Version None)
Quarter: 2009Q4

REPORT INFORMATION
  Report Type: 
  Country: None (occurrence: None)
  Receive Date: 20091120
  Receipt Date: 20091113
  Transmission Date: 20100525
  Serious: Yes (Other)
  Sender: FDA-Public Use
  Company Number: JP-JNJFOC-20091005336

PATIENT
  Age: 60 Year
  Sex: Male

DRUGS (3)
  1. ITRIZOLE [Suspect]
     Indication: DRUG USE FOR UNKNOWN INDICATION
     Route: 048
  2. HYDROCORTISONE BUTYRATE [Concomitant]
     Route: 061
  3. WHITE PETROLATUM [Concomitant]
     Route: 065

REACTIONS (3)
  - EOSINOPHILIA [None]
  - LYMPHOCYTE MORPHOLOGY ABNORMAL [None]
  - MONOCYTE COUNT INCREASED [None]
